FAERS Safety Report 25359513 (Version 1)
Quarter: 2025Q2

REPORT INFORMATION
  Report Type: Spontaneous
  Country: GB (occurrence: GB)
  Receive Date: 20250526
  Receipt Date: 20250526
  Transmission Date: 20250716
  Serious: Yes (Other)
  Sender: TEVA
  Company Number: GB-MHRA-EMIS-2850-c195f60a-81b4-486c-90e8-b05921edee6b

PATIENT
  Age: 21 Year
  Sex: Female

DRUGS (3)
  1. NAPROXEN [Suspect]
     Active Substance: NAPROXEN
     Indication: Product used for unknown indication
     Dosage: ONE TO BE TAKEN TWICE A DAY, DAILY DOSE: 2 DOSAGE FORM DAILY, DURATION: 5 DAYS
     Route: 065
     Dates: start: 20250305, end: 20250310
  2. SUMATRIPTAN [Concomitant]
     Active Substance: SUMATRIPTAN
     Indication: Migraine
     Route: 065
     Dates: start: 20250303
  3. FEXOFENADINE [Concomitant]
     Active Substance: FEXOFENADINE HYDROCHLORIDE
     Indication: Product used for unknown indication
     Dosage: ONE TO BE TAKEN EACH DAY, DAILY DOSE: 1 DOSAGE FORM DAILY
     Route: 065
     Dates: start: 20250310

REACTIONS (1)
  - Lip swelling [Recovering/Resolving]

NARRATIVE: CASE EVENT DATE: 20250309
